FAERS Safety Report 4496977-9 (Version None)
Quarter: 2004Q3

REPORT INFORMATION
  Report Type: 
  Country: None (occurrence: None)
  Receive Date: 20040928
  Receipt Date: 20040719
  Transmission Date: 20050211
  Serious: No
  Sender: FDA-Public Use
  Company Number: 04P-163-0267628-00

PATIENT
  Age: 65 Year
  Sex: Female
  Weight: 77.1115 kg

DRUGS (9)
  1. HUMIRA [Suspect]
     Indication: RHEUMATOID ARTHRITIS
     Dosage: 40 MG, 1 IN 2 WK, SUBCUTANEOUS
     Route: 058
     Dates: start: 20040201
  2. OMEPRAZOLE [Concomitant]
  3. CONJUGATED ESTROGEN [Concomitant]
  4. LOVASTATIN [Concomitant]
  5. METHOTREXATE [Concomitant]
  6. FOLINIC ACID [Concomitant]
  7. ATENOLOL [Concomitant]
  8. NIFEDICAL [Concomitant]
  9. LISINOPRIL [Concomitant]

REACTIONS (2)
  - DIARRHOEA [None]
  - NAUSEA [None]
